FAERS Safety Report 21933735 (Version 1)
Quarter: 2023Q1

REPORT INFORMATION
  Report Type: Spontaneous
  Country: JP (occurrence: JP)
  Receive Date: 20230201
  Receipt Date: 20230201
  Transmission Date: 20230417
  Serious: Yes (Other)
  Sender: FDA-Public Use
  Company Number: JP-AMGEN-JPNCT2019179825

PATIENT
  Age: 41 Year
  Sex: Male

DRUGS (36)
  1. ROMIPLOSTIM [Suspect]
     Active Substance: ROMIPLOSTIM
     Indication: Platelet count decreased
     Dosage: 5 MICROGRAM/KILOGRAM
     Route: 058
     Dates: start: 20191004, end: 20191030
  2. ROMIPLOSTIM [Suspect]
     Active Substance: ROMIPLOSTIM
     Dosage: 15 MICROGRAM/KILOGRAM
     Route: 058
     Dates: start: 20191031, end: 20191111
  3. URSODIOL [Concomitant]
     Active Substance: URSODIOL
     Indication: Hepatobiliary disorder prophylaxis
     Dosage: 200 MILLIGRAM, TID
     Dates: start: 20190926
  4. NEXIUM [Concomitant]
     Active Substance: ESOMEPRAZOLE MAGNESIUM
     Indication: Gastritis prophylaxis
     Dosage: 20 MILLIGRAM, QD
     Dates: start: 20190926
  5. FLUVOXAMINE [Concomitant]
     Active Substance: FLUVOXAMINE
     Indication: Obsessive-compulsive disorder
     Dosage: 100 MILLIGRAM, BID
  6. BIPERIDEN HYDROCHLORIDE [Concomitant]
     Active Substance: BIPERIDEN HYDROCHLORIDE
     Indication: Nervous system disorder prophylaxis
     Dosage: 1 MILLIGRAM, BID
  7. HALOPERIDOL [Concomitant]
     Active Substance: HALOPERIDOL
     Indication: Obsessive-compulsive disorder
     Dosage: 0.75 MILLIGRAM, BID
     Route: 048
  8. BIO-THREE [Concomitant]
     Active Substance: HERBALS
     Indication: Irritable bowel syndrome
     Dosage: 1 GRAM, TID
     Route: 048
  9. MYCOPHENOLATE MOFETIL [Concomitant]
     Active Substance: MYCOPHENOLATE MOFETIL
     Indication: Prophylaxis against graft versus host disease
     Dosage: 1000 MILLIGRAM, BID
     Route: 048
     Dates: start: 20191002
  10. HYDROXYZINE HYDROCHLORIDE [Concomitant]
     Active Substance: HYDROXYZINE HYDROCHLORIDE
     Indication: Nausea
     Dosage: 25 MILLIGRAM, AS NECESSARY
     Route: 041
     Dates: start: 20190929
  11. HYDROXYZINE HYDROCHLORIDE [Concomitant]
     Active Substance: HYDROXYZINE HYDROCHLORIDE
     Indication: Rash
  12. CHLORPROMAZINE [Concomitant]
     Active Substance: CHLORPROMAZINE
     Indication: Nausea
     Dosage: 10 MILLIGRAM, AS NECESSARY
     Route: 041
     Dates: start: 20191005
  13. CHLORPROMAZINE [Concomitant]
     Active Substance: CHLORPROMAZINE
     Indication: Rash
  14. MEROPENEM [Concomitant]
     Active Substance: MEROPENEM
     Indication: Febrile neutropenia
     Dosage: 1 GRAM, TID
     Route: 041
     Dates: start: 20191010
  15. CUBICIN [Concomitant]
     Active Substance: DAPTOMYCIN
     Indication: Febrile neutropenia
     Dosage: 425 MILLIGRAM, QD
     Route: 041
     Dates: start: 20191010
  16. AMBISOME [Concomitant]
     Active Substance: AMPHOTERICIN B
     Indication: Febrile neutropenia
     Dosage: 200 MILLIGRAM, QD
     Route: 041
     Dates: start: 20190913
  17. AMINO ACIDS\DEXTROSE\ELECTROLYTES NOS\MINERALS\VITAMINS [Concomitant]
     Active Substance: AMINO ACIDS\DEXTROSE\ELECTROLYTES NOS\MINERALS\VITAMINS
     Indication: Nausea
     Dosage: 1500 MILLILITER
     Route: 041
     Dates: start: 20191007
  18. KCL CORRECTIVE [Concomitant]
     Indication: Hypokalaemia
     Dosage: 40 MILLIEQUIVALENT
     Route: 041
     Dates: start: 20191003
  19. MAGNESIUM SULFATE HEPTAHYDRATE [Concomitant]
     Active Substance: MAGNESIUM SULFATE HEPTAHYDRATE
     Indication: Hypomagnesaemia
     Dosage: 20 MILLIEQUIVALENT
     Route: 041
     Dates: start: 20191007
  20. CALCIUM GLUCONATE [Concomitant]
     Active Substance: CALCIUM GLUCONATE
     Indication: Hypocalcaemia
     Dosage: 10 MILLILITER
     Route: 041
     Dates: start: 20191018
  21. MOMETASONE FUROATE [Concomitant]
     Active Substance: MOMETASONE FUROATE
     Indication: Rash
     Dosage: UNK, ONE TO SEVERAL TIMES
     Dates: start: 20191018
  22. DIPHENHYDRAMINE [Concomitant]
     Active Substance: DIPHENHYDRAMINE
     Indication: Rash
     Dosage: UNK, ONE TO SEVERAL TIMES
     Route: 061
     Dates: start: 20191018
  23. POLARAMINE [Concomitant]
     Active Substance: DEXCHLORPHENIRAMINE MALEATE
     Indication: Rash
     Dosage: 5 MILLIGRAM, AS NECESSARY
     Dates: start: 20191018
  24. FILGRASTIM [Concomitant]
     Active Substance: FILGRASTIM
     Indication: Neutrophil count decreased
     Dosage: 600 MICROGRAM
     Dates: start: 20191008
  25. CYCLOSPORINE [Concomitant]
     Active Substance: CYCLOSPORINE
     Indication: Prophylaxis against graft versus host disease
     Dosage: 280 MILLIGRAM
     Route: 041
     Dates: start: 20191002
  26. HALOPERIDOL [Concomitant]
     Active Substance: HALOPERIDOL
     Dosage: 5 MILLIGRAM, PRN
     Dates: start: 20191020
  27. RISPERIDONE [Concomitant]
     Active Substance: RISPERIDONE
     Dosage: 1 MILLIGRAM, PRN
     Route: 048
     Dates: start: 20191020
  28. SOLU-CORTEF [Concomitant]
     Active Substance: HYDROCORTISONE SODIUM SUCCINATE
     Dosage: 100 MILLIGRAM, PRN
     Route: 040
     Dates: start: 20191010
  29. SODIUM GUALENATE MONOHYDRATE [Concomitant]
     Active Substance: SODIUM GUALENATE MONOHYDRATE
     Dosage: UNK
     Route: 049
     Dates: start: 20191002
  30. XYLOCAINE [Concomitant]
     Active Substance: LIDOCAINE HYDROCHLORIDE
     Dosage: UNK
     Route: 049
     Dates: start: 20191002
  31. MAXACALCITOL [Concomitant]
     Active Substance: MAXACALCITOL
     Dosage: UNK (APPROPRIATE AMOUNT)
     Route: 061
  32. BETAMETHASONE DIPROPIONATE [Concomitant]
     Active Substance: BETAMETHASONE DIPROPIONATE
     Dosage: UNK (APPROPRIATE AMOUNT)
     Route: 061
  33. Posterisan [Concomitant]
     Dosage: 1 DOSAGE FORM, BID
     Route: 061
     Dates: start: 20191009
  34. TERBINAFINE HYDROCHLORIDE [Concomitant]
     Active Substance: TERBINAFINE HYDROCHLORIDE
     Dosage: UNK UNK, QD
     Route: 061
     Dates: start: 20191017
  35. FUROSEMIDE [Concomitant]
     Active Substance: FUROSEMIDE
     Dosage: 20 MILLIGRAM, PRN
     Route: 040
     Dates: start: 20190930
  36. ACETAMINOPHEN [Concomitant]
     Active Substance: ACETAMINOPHEN
     Dosage: 600 MILLIGRAM, PRN
     Route: 040
     Dates: start: 20191008

REACTIONS (1)
  - Human herpesvirus 6 encephalitis [Unknown]

NARRATIVE: CASE EVENT DATE: 20191021
